FAERS Safety Report 25570198 (Version 1)
Quarter: 2025Q3

REPORT INFORMATION
  Report Type: Spontaneous
  Country: US (occurrence: US)
  Receive Date: 20250717
  Receipt Date: 20250717
  Transmission Date: 20251020
  Serious: No
  Sender: ENDO
  Company Number: US-ENDO USA, INC.-2024-050939

PATIENT
  Sex: Female

DRUGS (6)
  1. CALCITONIN SALMON [Suspect]
     Active Substance: CALCITONIN SALMON
     Indication: Osteoporosis
     Route: 065
     Dates: start: 2024
  2. CALCITONIN SALMON [Suspect]
     Active Substance: CALCITONIN SALMON
     Indication: Osteoporosis
     Route: 065
     Dates: start: 2024
  3. CALCITONIN SALMON [Suspect]
     Active Substance: CALCITONIN SALMON
     Route: 065
     Dates: start: 202412, end: 202412
  4. CALCITONIN SALMON [Suspect]
     Active Substance: CALCITONIN SALMON
     Route: 065
     Dates: start: 202412, end: 202412
  5. CALCITONIN SALMON [Suspect]
     Active Substance: CALCITONIN SALMON
     Route: 065
  6. CALCITONIN SALMON [Suspect]
     Active Substance: CALCITONIN SALMON
     Route: 065

REACTIONS (4)
  - Headache [Unknown]
  - Poor quality product administered [Recovered/Resolved]
  - Product dose omission issue [Recovered/Resolved]
  - Product odour abnormal [Recovered/Resolved]

NARRATIVE: CASE EVENT DATE: 20240101
